FAERS Safety Report 7624899-0 (Version None)
Quarter: 2011Q3

REPORT INFORMATION
  Report Type: 
  Country: None (occurrence: None)
  Receive Date: 20110720
  Receipt Date: 20110714
  Transmission Date: 20111222
  Serious: Yes (Hospitalization, Other)
  Sender: FDA-Public Use
  Company Number: US-MERCK-1104USA03481

PATIENT
  Age: 56 Year
  Sex: Male
  Weight: 75 kg

DRUGS (4)
  1. FOSAMAX [Suspect]
     Indication: OSTEOPOROSIS
     Route: 048
     Dates: start: 20060401, end: 20091201
  2. [THERAPY UNSPECIFIED] [Concomitant]
     Route: 065
     Dates: start: 19890101
  3. CATAPRES [Concomitant]
     Indication: HYPERTENSION
     Route: 065
     Dates: start: 19890101
  4. NOVOLIN 70/30 [Concomitant]
     Indication: DIABETES MELLITUS
     Route: 065
     Dates: start: 20050101

REACTIONS (36)
  - GLYCOSYLATED HAEMOGLOBIN INCREASED [None]
  - DRUG WITHDRAWAL SYNDROME [None]
  - BARRETT'S OESOPHAGUS [None]
  - FEMUR FRACTURE [None]
  - INSOMNIA [None]
  - GASTROOESOPHAGEAL REFLUX DISEASE [None]
  - OSTEOARTHRITIS [None]
  - ADVERSE DRUG REACTION [None]
  - ANGINA PECTORIS [None]
  - DRUG HYPERSENSITIVITY [None]
  - SPINAL OSTEOARTHRITIS [None]
  - HYPERLIPIDAEMIA [None]
  - DIABETIC NEUROPATHY [None]
  - ABSCESS LIMB [None]
  - TONSILLAR DISORDER [None]
  - NECROSIS [None]
  - PILONIDAL CYST [None]
  - EROSIVE OESOPHAGITIS [None]
  - CONSTIPATION [None]
  - HYPERGLYCAEMIA [None]
  - ANAL FISTULA [None]
  - EX-DRUG ABUSER [None]
  - ANAEMIA [None]
  - LOW DENSITY LIPOPROTEIN INCREASED [None]
  - HIATUS HERNIA [None]
  - ARTHROPATHY [None]
  - HEPATITIS C [None]
  - UPPER LIMB FRACTURE [None]
  - DRUG DEPENDENCE [None]
  - BENIGN PROSTATIC HYPERPLASIA [None]
  - CATARACT [None]
  - RENAL FAILURE CHRONIC [None]
  - STAPHYLOCOCCAL INFECTION [None]
  - CHEST PAIN [None]
  - PERIPHERAL VASCULAR DISORDER [None]
  - PERIPHERAL ARTERIAL OCCLUSIVE DISEASE [None]
